FAERS Safety Report 18895830 (Version 1)
Quarter: 2021Q1

REPORT INFORMATION
  Report Type: Spontaneous
  Country: DE (occurrence: DE)
  Receive Date: 20210216
  Receipt Date: 20210216
  Transmission Date: 20210420
  Serious: Yes (Other)
  Sender: FDA-Public Use
  Company Number: DE-TEVA-2021-DE-1879923

PATIENT
  Age: 73 Year
  Sex: Female
  Weight: 70 kg

DRUGS (1)
  1. TELMISARTAN ABZ 60 MG TABLETTEN [Suspect]
     Active Substance: TELMISARTAN
     Dosage: 60 MILLIGRAM DAILY;
     Route: 048
     Dates: start: 201302

REACTIONS (2)
  - Heart rate decreased [Not Recovered/Not Resolved]
  - Arrhythmia [Not Recovered/Not Resolved]

NARRATIVE: CASE EVENT DATE: 201902
